FAERS Safety Report 23539476 (Version 1)
Quarter: 2024Q1

REPORT INFORMATION
  Report Type: Spontaneous
  Country: US (occurrence: US)
  Receive Date: 20240219
  Receipt Date: 20240219
  Transmission Date: 20240410
  Serious: No
  Sender: FDA-Public Use
  Company Number: US-CTI BIOPHARMA-2024US04405

PATIENT

DRUGS (12)
  1. VONJO [Suspect]
     Active Substance: PACRITINIB
     Indication: Myelodysplastic syndrome
     Dosage: 200 MG, BID
     Dates: start: 20231031, end: 20240213
  2. ONDANSETRON [Concomitant]
     Active Substance: ONDANSETRON
  3. CRESEMBA [Concomitant]
     Active Substance: ISAVUCONAZONIUM SULFATE
  4. POTASSIUM CHLORIDE [Concomitant]
     Active Substance: POTASSIUM CHLORIDE
  5. PEPCID [Concomitant]
     Active Substance: FAMOTIDINE
  6. LASIX [Concomitant]
     Active Substance: FUROSEMIDE
  7. FLOMAX [Concomitant]
     Active Substance: TAMSULOSIN HYDROCHLORIDE
  8. LOPERAMIDE [Concomitant]
     Active Substance: LOPERAMIDE
  9. BISMUTH [Concomitant]
     Active Substance: BISMUTH
  10. CETIRIZINE [Concomitant]
     Active Substance: CETIRIZINE HYDROCHLORIDE
  11. LEVOTHYROXINE [Concomitant]
     Active Substance: LEVOTHYROXINE\LEVOTHYROXINE SODIUM
  12. KLOR-CON/EF [Concomitant]
     Active Substance: POTASSIUM BICARBONATE

REACTIONS (3)
  - Off label use [Unknown]
  - Adverse event [Unknown]
  - Haemorrhage [Unknown]
